FAERS Safety Report 5223452-6 (Version None)
Quarter: 2007Q1

REPORT INFORMATION
  Report Type: 
  Country: None (occurrence: None)
  Receive Date: 20070125
  Receipt Date: 20070112
  Transmission Date: 20070707
  Serious: Yes (Hospitalization, Other)
  Sender: FDA-Public Use
  Company Number: 2006BI017814

PATIENT
  Age: 53 Year
  Sex: Male
  Weight: 84 kg

DRUGS (1)
  1. ZEVALIN [Suspect]
     Indication: B-CELL LYMPHOMA
     Dosage: 4 MCI; 1X; IV
     Route: 042
     Dates: start: 20061012, end: 20061012

REACTIONS (5)
  - BLADDER DISORDER [None]
  - BURKITT'S LYMPHOMA [None]
  - CYSTITIS HAEMORRHAGIC [None]
  - THROMBOCYTOPENIA [None]
  - URETERIC DILATATION [None]
